FAERS Safety Report 16726113 (Version 1)
Quarter: 2019Q3

REPORT INFORMATION
  Report Type: Spontaneous
  Country: BR (occurrence: BR)
  Receive Date: 20190821
  Receipt Date: 20190821
  Transmission Date: 20191005
  Serious: Yes (Other)
  Sender: FDA-Public Use
  Company Number: BR-JNJFOC-20190815666

PATIENT
  Age: 47 Year
  Sex: Male
  Weight: 98 kg

DRUGS (1)
  1. SIMPONI [Suspect]
     Active Substance: GOLIMUMAB
     Indication: PSORIATIC ARTHROPATHY
     Route: 058
     Dates: start: 2019

REACTIONS (5)
  - Psoriatic arthropathy [Unknown]
  - Diabetes mellitus [Unknown]
  - Tooth disorder [Unknown]
  - Haemochromatosis [Unknown]
  - Hypertension [Unknown]

NARRATIVE: CASE EVENT DATE: 2019
